FAERS Safety Report 10207259 (Version 1)
Quarter: 2014Q2

REPORT INFORMATION
  Report Type: Spontaneous
  Country: US (occurrence: US)
  Receive Date: 20140530
  Receipt Date: 20140530
  Transmission Date: 20141212
  Serious: No
  Sender: FDA-Public Use
  Company Number: US-GLAXOSMITHKLINE-A1027456A

PATIENT
  Age: 5 Year
  Sex: Female

DRUGS (3)
  1. VENTOLIN [Suspect]
     Indication: MULTIPLE ALLERGIES
     Route: 055
     Dates: start: 201304
  2. LORATADINE [Concomitant]
  3. FLUTICASONE [Concomitant]

REACTIONS (3)
  - Wheezing [Recovering/Resolving]
  - Cough [Unknown]
  - Product quality issue [Unknown]
